FAERS Safety Report 25371517 (Version 4)
Quarter: 2025Q3

REPORT INFORMATION
  Report Type: Spontaneous
  Country: JP (occurrence: JP)
  Receive Date: 20250529
  Receipt Date: 20250904
  Transmission Date: 20251021
  Serious: Yes (Hospitalization, Other)
  Sender: MERCK SHARP & DOHME LLC
  Company Number: JP-009507513-2290290

PATIENT
  Age: 57 Year
  Sex: Female
  Weight: 53.4 kg

DRUGS (6)
  1. KEYTRUDA [Suspect]
     Active Substance: PEMBROLIZUMAB
     Indication: Endometrial cancer recurrent
     Route: 041
     Dates: start: 20250207, end: 2025
  2. LENVIMA [Suspect]
     Active Substance: LENVATINIB
     Indication: Endometrial cancer recurrent
     Dosage: STRENGTH: 10 MG
     Route: 048
     Dates: start: 20250207, end: 20250210
  3. LENVIMA [Suspect]
     Active Substance: LENVATINIB
     Indication: Endometrial cancer recurrent
     Dosage: STRENGTH: 10 MG DOSE REDUCED
     Route: 048
     Dates: start: 20250218
  4. PREDNISOLONE [Suspect]
     Active Substance: PREDNISOLONE
     Indication: Diarrhoea
     Route: 048
     Dates: start: 2025, end: 2025
  5. PREDNISOLONE [Suspect]
     Active Substance: PREDNISOLONE
     Indication: Diarrhoea
     Route: 048
     Dates: start: 2025, end: 2025
  6. PREDNISOLONE [Suspect]
     Active Substance: PREDNISOLONE
     Indication: Diarrhoea
     Route: 048
     Dates: start: 2025, end: 2025

REACTIONS (7)
  - Hypertension [Recovered/Resolved]
  - Thyroid disorder [Recovering/Resolving]
  - Diarrhoea [Recovered/Resolved]
  - Therapy partial responder [Unknown]
  - Pain [Recovering/Resolving]
  - Aldolase increased [Unknown]
  - Steroid withdrawal syndrome [Recovering/Resolving]

NARRATIVE: CASE EVENT DATE: 20250101
